FAERS Safety Report 6278363-4 (Version None)
Quarter: 2009Q3

REPORT INFORMATION
  Report Type: 
  Country: None (occurrence: None)
  Receive Date: 20090720
  Receipt Date: 20090720
  Transmission Date: 20100115
  Serious: No
  Sender: FDA-Public Use
  Company Number: None

PATIENT
  Age: 66 Year
  Sex: Female
  Weight: 95.2554 kg

DRUGS (2)
  1. HYALGAN SANOFI-AVENTIS [Suspect]
     Indication: OSTEOARTHRITIS
     Dosage: 1 SHOT EVERY WK FOR 3 WKS
     Dates: start: 20090527, end: 20090610
  2. HYALGAN [Concomitant]

REACTIONS (2)
  - DIARRHOEA [None]
  - HEADACHE [None]
